FAERS Safety Report 11529342 (Version 1)
Quarter: 2015Q3

REPORT INFORMATION
  Report Type: Spontaneous
  Country: US (occurrence: None)
  Receive Date: 20150918
  Receipt Date: 20150918
  Transmission Date: 20151125
  Serious: No
  Sender: FDA-Public Use
  Company Number: None

PATIENT
  Age: 53 Year
  Sex: Female
  Weight: 74.84 kg

DRUGS (2)
  1. AMOXICILLIN AND CLAVULANATE POTASSIUM [Suspect]
     Active Substance: AMOXICILLIN\CLAVULANATE POTASSIUM
     Indication: TOOTH ABSCESS
     Route: 048
     Dates: start: 20150906, end: 20150906
  2. LISINOPRIL. [Concomitant]
     Active Substance: LISINOPRIL

REACTIONS (7)
  - Urticaria [None]
  - Diarrhoea [None]
  - Swelling face [None]
  - Abdominal pain upper [None]
  - Pruritus generalised [None]
  - Headache [None]
  - Heart rate increased [None]

NARRATIVE: CASE EVENT DATE: 20150906
